FAERS Safety Report 10009592 (Version 1)
Quarter: 2014Q1

REPORT INFORMATION
  Report Type: Spontaneous
  Country: US (occurrence: US)
  Receive Date: 20140312
  Receipt Date: 20140312
  Transmission Date: 20141002
  Serious: No
  Sender: FDA-Public Use
  Company Number: US-INCYTE CORPORATION-2012IN001794

PATIENT
  Age: 63 Year
  Sex: Female

DRUGS (11)
  1. JAKAFI [Suspect]
     Indication: MYELOFIBROSIS
     Dosage: 10 MG, BID
     Route: 048
  2. TOPROL [Concomitant]
     Dosage: 75 MG, QD
  3. DIOVAN [Concomitant]
     Dosage: 160 MG, QD
  4. LASIX [Concomitant]
     Dosage: 30 MG, QD
  5. ALLOPURINOL [Concomitant]
     Dosage: 200 MG, QD
  6. ASPIRIN [Concomitant]
     Dosage: 81 MG, QD
  7. IRON [Concomitant]
     Indication: SUPPLEMENTATION THERAPY
  8. MULTIVITAMIN [Concomitant]
     Dosage: UNK, QD
  9. CALCIUM [Concomitant]
     Dosage: UNK, QD
  10. PRILOSEC [Concomitant]
     Dosage: 40 MG, QD
  11. ELAVIL [Concomitant]
     Dosage: 10 MG, QHS

REACTIONS (2)
  - Tendonitis [Recovered/Resolved with Sequelae]
  - Joint stiffness [Not Recovered/Not Resolved]
